FAERS Safety Report 5050539-3 (Version None)
Quarter: 2006Q3

REPORT INFORMATION
  Report Type: 
  Country: None (occurrence: None)
  Receive Date: 20060707
  Receipt Date: 20060629
  Transmission Date: 20061208
  Serious: Yes (Hospitalization, Other)
  Sender: FDA-Public Use
  Company Number: DEWYE657929MAY06

PATIENT
  Age: 45 Year
  Sex: Female

DRUGS (4)
  1. VENLAFAXINE HCL [Suspect]
     Dosage: 50 CAPSULES (OVERDOSE AMOUNT 3750 MG)
     Route: 048
     Dates: start: 20060528, end: 20060528
  2. DOXEPIN HCL [Suspect]
     Dosage: 90 TABLETS (OVERDOSE AMOUNT 4500 MG)
     Route: 048
     Dates: start: 20060528, end: 20060528
  3. KLOSTERFRAU MELISSENGEIST           (ETHANOL/HERBAL EXTRACTS NOS, , 0) [Suspect]
     Dosage: 1 BOTTLE
     Route: 048
     Dates: start: 20060528, end: 20060528
  4. ZOLPIDEM TARTRATE [Suspect]
     Dosage: 20 TABLETS (OVERDOSE AMOUNT 200 MG)
     Route: 048
     Dates: start: 20060528, end: 20060528

REACTIONS (5)
  - COMA [None]
  - HYPOTENSION [None]
  - MULTIPLE DRUG OVERDOSE INTENTIONAL [None]
  - RESPIRATORY FAILURE [None]
  - SUICIDE ATTEMPT [None]
